FAERS Safety Report 6226025-1 (Version None)
Quarter: 2009Q2

REPORT INFORMATION
  Report Type: 
  Country: None (occurrence: None)
  Receive Date: 20090612
  Receipt Date: 20090608
  Transmission Date: 20091009
  Serious: Yes (Hospitalization)
  Sender: FDA-Public Use
  Company Number: CH-BAYER-200922526GPV

PATIENT
  Age: 58 Year
  Sex: Male

DRUGS (6)
  1. BETAFERON [Suspect]
     Indication: MULTIPLE SCLEROSIS
     Route: 058
     Dates: start: 20040101
  2. ACETALGIN [Concomitant]
     Indication: INFLUENZA LIKE ILLNESS
     Route: 048
  3. VESICARE [Concomitant]
     Indication: URINARY INCONTINENCE
     Route: 048
  4. SALOFALK [Concomitant]
     Indication: COLITIS ULCERATIVE
     Route: 048
  5. SALOFALK [Concomitant]
     Route: 054
  6. BULBOID [Concomitant]
     Indication: CONSTIPATION

REACTIONS (1)
  - MUSCLE SPASTICITY [None]
